FAERS Safety Report 18013508 (Version 1)
Quarter: 2020Q3

REPORT INFORMATION
  Report Type: Spontaneous
  Country: US (occurrence: US)
  Receive Date: 20200711
  Receipt Date: 20200711
  Transmission Date: 20201103
  Serious: Yes (Hospitalization)
  Sender: FDA-Public Use
  Company Number: None

PATIENT
  Age: 60 Year
  Sex: Male
  Weight: 117 kg

DRUGS (1)
  1. CISPLATIN. [Suspect]
     Active Substance: CISPLATIN
     Dosage: ?          OTHER ROUTE:IV FOR 7 WEEKS?
     Route: 042
     Dates: end: 20200622

REACTIONS (4)
  - Hypomagnesaemia [None]
  - White blood cell count decreased [None]
  - Decreased appetite [None]
  - Lymphocyte count decreased [None]

NARRATIVE: CASE EVENT DATE: 20200629
